FAERS Safety Report 8275090-9 (Version None)
Quarter: 2012Q2

REPORT INFORMATION
  Report Type: 
  Country: None (occurrence: None)
  Receive Date: 20120411
  Receipt Date: 20120405
  Transmission Date: 20120825
  Serious: Yes (Hospitalization)
  Sender: FDA-Public Use
  Company Number: DE-PFIZER INC-2012086113

PATIENT
  Age: 49 Year
  Sex: Male
  Weight: 141 kg

DRUGS (7)
  1. TESTOVIRON [Concomitant]
     Indication: BLOOD FOLLICLE STIMULATING HORMONE DECREASED
  2. SOMATROPIN [Suspect]
     Indication: HYPOPITUITARISM
     Dosage: 0.3 UNIT NOT PROVIDED, 1X/DAY
     Dates: start: 20080118, end: 20080331
  3. SOMATROPIN [Suspect]
     Dosage: 0.3 UNIT NOT PROVIDED, 1X/DAY
     Dates: start: 20080718
  4. HYDROCORTISONE [Concomitant]
     Indication: BLOOD CORTICOTROPHIN DECREASED
     Dosage: 25 MG, DAILY
     Dates: start: 20030101
  5. TESTOVIRON [Concomitant]
     Indication: BLOOD LUTEINISING HORMONE DECREASED
     Dosage: 250 MG, MONTHLY
  6. BISOPROLOL [Concomitant]
     Dosage: 20 MG, DAILY
     Dates: start: 20030101
  7. DOSTINEX [Concomitant]
     Dosage: 0.5 MG, WEEKLY
     Dates: start: 20030101

REACTIONS (1)
  - TENDON RUPTURE [None]
